FAERS Safety Report 5046999-4 (Version None)
Quarter: 2006Q2

REPORT INFORMATION
  Report Type: 
  Country: None (occurrence: None)
  Receive Date: 20060630
  Receipt Date: 20060622
  Transmission Date: 20061013
  Serious: Yes (Life-Threatening, Other)
  Sender: FDA-Public Use
  Company Number: 2006078866

PATIENT
  Age: 69 Year
  Sex: Female

DRUGS (1)
  1. FRAGMIN [Suspect]
     Indication: THROMBOSIS PROPHYLAXIS
     Dosage: 44000 I.U. (44000 I.U.), SUBCUTANEO
     Route: 058
     Dates: start: 20060617, end: 20060619

REACTIONS (1)
  - INCORRECT DOSE ADMINISTERED [None]
